FAERS Safety Report 5907662-8 (Version None)
Quarter: 2008Q4

REPORT INFORMATION
  Report Type: 
  Country: None (occurrence: None)
  Receive Date: 20081003
  Receipt Date: 20080920
  Transmission Date: 20090506
  Serious: Yes (Death)
  Sender: FDA-Public Use
  Company Number: IT-BAUSCH-2008BL004179

PATIENT
  Age: 30 Year
  Sex: Male

DRUGS (1)
  1. CIPROFLOXACIN [Suspect]
     Indication: URINARY TRACT INFECTION
     Route: 048

REACTIONS (10)
  - ABDOMINAL PAIN [None]
  - CARDIAC FAILURE ACUTE [None]
  - CONFUSIONAL STATE [None]
  - DEHYDRATION [None]
  - HAEMOLYSIS [None]
  - JAUNDICE [None]
  - PULMONARY OEDEMA [None]
  - PYREXIA [None]
  - THROMBOCYTOPENIA [None]
  - VOMITING [None]
